FAERS Safety Report 9720075 (Version 1)
Quarter: 2013Q4

REPORT INFORMATION
  Report Type: Spontaneous
  Country: US (occurrence: US)
  Receive Date: 20131128
  Receipt Date: 20131128
  Transmission Date: 20140711
  Serious: No
  Sender: FDA-Public Use
  Company Number: US-009507513-1311USA012043

PATIENT
  Age: 40 Year
  Sex: Male

DRUGS (2)
  1. EMEND [Suspect]
     Indication: PROPHYLAXIS OF NAUSEA AND VOMITING
  2. CISPLATIN [Concomitant]

REACTIONS (1)
  - Flushing [Recovered/Resolved]
